FAERS Safety Report 6575422-3 (Version None)
Quarter: 2010Q1

REPORT INFORMATION
  Report Type: 
  Country: None (occurrence: None)
  Receive Date: 20100209
  Receipt Date: 20100201
  Transmission Date: 20100710
  Serious: Yes (Other)
  Sender: FDA-Public Use
  Company Number: US-JNJFOC-20100200235

PATIENT
  Age: 12 Year
  Sex: Male

DRUGS (2)
  1. MOTRIN JUNIOR STRENGTH [Suspect]
     Route: 048
  2. MOTRIN JUNIOR STRENGTH [Suspect]
     Indication: DRUG USE FOR UNKNOWN INDICATION
     Route: 048

REACTIONS (3)
  - ABDOMINAL PAIN UPPER [None]
  - CYCLIC VOMITING SYNDROME [None]
  - PRODUCT QUALITY ISSUE [None]
